FAERS Safety Report 8214035-4 (Version None)
Quarter: 2012Q1

REPORT INFORMATION
  Report Type: 
  Country: None (occurrence: None)
  Receive Date: 20120314
  Receipt Date: 20120314
  Transmission Date: 20120608
  Serious: Yes (Hospitalization)
  Sender: FDA-Public Use
  Company Number: None

PATIENT
  Sex: Female
  Weight: 56.6996 kg

DRUGS (1)
  1. MORPHINE SULFATE [Suspect]
     Indication: PELVIC PAIN
     Dosage: 10 MG ONE TIME IV
     Route: 042
     Dates: start: 20120217

REACTIONS (4)
  - URTICARIA [None]
  - PRURITUS [None]
  - BLISTER [None]
  - INFUSION SITE ERYTHEMA [None]
